FAERS Safety Report 9455580 (Version 1)
Quarter: 2013Q3

REPORT INFORMATION
  Report Type: Spontaneous
  Country: AU (occurrence: AU)
  Receive Date: 20130813
  Receipt Date: 20130813
  Transmission Date: 20140515
  Serious: Yes (Hospitalization)
  Sender: FDA-Public Use
  Company Number: AU-PFIZER INC-2013233445

PATIENT
  Age: 27 Year
  Sex: Male
  Weight: 86 kg

DRUGS (6)
  1. TAZOCIN EF [Suspect]
     Dosage: 13.5 G, 1X/DAY
     Route: 042
     Dates: start: 20110121, end: 20110125
  2. VANCOMYCIN HYDROCHLORIDE [Suspect]
     Dosage: 1 DF, 1X/DAY
     Route: 042
     Dates: start: 20110124, end: 20110125
  3. ACICLOVIR [Concomitant]
  4. LORATADINE [Concomitant]
  5. PANTOPRAZOLE [Concomitant]
  6. PARACETAMOL [Concomitant]

REACTIONS (2)
  - Nephropathy toxic [Not Recovered/Not Resolved]
  - Red man syndrome [Not Recovered/Not Resolved]
